FAERS Safety Report 7383790-8 (Version None)
Quarter: 2011Q1

REPORT INFORMATION
  Report Type: 
  Country: None (occurrence: None)
  Receive Date: 20110322
  Receipt Date: 20110311
  Transmission Date: 20110831
  Serious: Yes (Hospitalization)
  Sender: FDA-Public Use
  Company Number: 2011EN000002

PATIENT
  Age: 15 Year
  Sex: Female
  Weight: 64.8 kg

DRUGS (9)
  1. CYCLOPHOSPHAMIDE [Suspect]
     Indication: ACUTE LYMPHOCYTIC LEUKAEMIA
     Dosage: 3300 MG, IV
     Route: 042
     Dates: end: 20110106
  2. VINCRISTINE [Suspect]
     Indication: ACUTE LYMPHOCYTIC LEUKAEMIA
     Dosage: 6 MG, X1; IV
     Route: 042
     Dates: end: 20110119
  3. ONCASPAR [Suspect]
     Indication: ACUTE LYMPHOCYTIC LEUKAEMIA
     Dosage: 3925 IU, X1, IV
     Route: 042
     Dates: start: 20110119, end: 20110119
  4. EZN-2285 (SC-PEG E. COLI L-ASPARAGINASE) [Suspect]
     Indication: ACUTE LYMPHOCYTIC LEUKAEMIA
     Dosage: 2100 IU, M2, X1, IV, 3350 IU, X1, IV
     Route: 042
     Dates: start: 20101022, end: 20101022
  5. EZN-2285 (SC-PEG E. COLI L-ASPARAGINASE) [Suspect]
     Indication: ACUTE LYMPHOCYTIC LEUKAEMIA
     Dosage: 2100 IU, M2, X1, IV, 3350 IU, X1, IV
     Route: 042
     Dates: start: 20101214, end: 20101214
  6. CYTARABINE [Suspect]
     Indication: ACUTE LYMPHOCYTIC LEUKAEMIA
     Dosage: 2024 MG, IV
     Route: 042
     Dates: end: 20110116
  7. METHOTREXATE [Suspect]
     Indication: ACUTE LYMPHOCYTIC LEUKAEMIA
     Dosage: 60 MG, INTH
     Route: 055
     Dates: end: 20101230
  8. PAXIL [Concomitant]
  9. MERCAPTOPURINE [Suspect]
     Indication: ACUTE LYMPHOCYTIC LEUKAEMIA
     Dosage: 2900 MG, PO
     Route: 048
     Dates: end: 20110119

REACTIONS (27)
  - ABDOMINAL PAIN [None]
  - ATTENTION DEFICIT/HYPERACTIVITY DISORDER [None]
  - GENITAL LESION [None]
  - LEUKOPENIA [None]
  - HYPOCALCAEMIA [None]
  - ATELECTASIS [None]
  - ASCITES [None]
  - HAEMOGLOBIN DECREASED [None]
  - LYMPHOPENIA [None]
  - TRICHOTILLOMANIA [None]
  - HYPOALBUMINAEMIA [None]
  - LEUKAEMIC INFILTRATION HEPATIC [None]
  - DIARRHOEA [None]
  - NO THERAPEUTIC RESPONSE [None]
  - THROMBOCYTOPENIA [None]
  - PNEUMONIA KLEBSIELLA [None]
  - ASPARTATE AMINOTRANSFERASE INCREASED [None]
  - URINARY TRACT INFECTION [None]
  - HEPATIC STEATOSIS [None]
  - SEPTIC SHOCK [None]
  - ALANINE AMINOTRANSFERASE INCREASED [None]
  - LIVER DISORDER [None]
  - VULVOVAGINAL MYCOTIC INFECTION [None]
  - OBSESSIVE-COMPULSIVE DISORDER [None]
  - ORAL CANDIDIASIS [None]
  - HYPOXIA [None]
  - NEUTROPENIA [None]
